FAERS Safety Report 8645719 (Version 3)
Quarter: 2013Q2

REPORT INFORMATION
  Report Type: Spontaneous
  Country: JP (occurrence: None)
  Receive Date: 20120620
  Receipt Date: 20130507
  Transmission Date: 20140414
  Serious: Yes (Hospitalization, Other)
  Sender: FDA-Public Use
  Company Number: ADR-2011-10463

PATIENT
  Age: 20 Year
  Sex: Male

DRUGS (2)
  1. BACLOFEN [Suspect]
     Dosage: UNK MCH, DAILY, INTRATH
  2. ZYVOX [Concomitant]

REACTIONS (4)
  - C-REACTIVE PROTEIN INCREASED [None]
  - INFECTION [None]
  - WOUND SECRETION [None]
  - Purulence [None]
